FAERS Safety Report 17019516 (Version 1)
Quarter: 2019Q4

REPORT INFORMATION
  Report Type: Spontaneous
  Country: PT (occurrence: PT)
  Receive Date: 20191112
  Receipt Date: 20191112
  Transmission Date: 20200122
  Serious: Yes (Hospitalization, Other)
  Sender: FDA-Public Use
  Company Number: PT-STRIDES ARCOLAB LIMITED-2019SP011326

PATIENT
  Age: 21 Month

DRUGS (2)
  1. PARACETAMOL [Concomitant]
     Active Substance: ACETAMINOPHEN
     Indication: PYREXIA
     Dosage: 15 MILLIGRAM/KILOGRAM, EVERY 8 HOURS
     Route: 065
  2. IBUPROFEN. [Suspect]
     Active Substance: IBUPROFEN
     Indication: PYREXIA
     Dosage: 7 MILLIGRAM/KILOGRAM, EVERY 8 HOURS
     Route: 065

REACTIONS (8)
  - Erythema [Unknown]
  - Skin lesion inflammation [Recovered/Resolved]
  - Skin ulcer [Unknown]
  - Varicella zoster virus infection [Recovered/Resolved]
  - Pain of skin [Recovered/Resolved]
  - Condition aggravated [Recovered/Resolved]
  - Rash [Unknown]
  - Skin lesion [Recovered/Resolved]
